FAERS Safety Report 5375905-8 (Version None)
Quarter: 2007Q2

REPORT INFORMATION
  Report Type: 
  Country: None (occurrence: None)
  Receive Date: 20070627
  Receipt Date: 20070627
  Transmission Date: 20071010
  Serious: Yes (Death)
  Sender: FDA-Public Use
  Company Number: None

PATIENT
  Sex: Male
  Weight: 65 kg

DRUGS (3)
  1. CYTARABINE [Suspect]
  2. DAUNORUBICIN HCL [Suspect]
  3. ETOPOSIDE [Suspect]

REACTIONS (11)
  - BLOOD PHOSPHORUS DECREASED [None]
  - BLOOD POTASSIUM DECREASED [None]
  - HYPOTENSION [None]
  - LOBAR PNEUMONIA [None]
  - MUCOSAL INFLAMMATION [None]
  - NAUSEA [None]
  - ORAL INTAKE REDUCED [None]
  - RESPIRATORY DISTRESS [None]
  - SEPSIS [None]
  - SPUTUM CULTURE POSITIVE [None]
  - STENOTROPHOMONAS INFECTION [None]
